FAERS Safety Report 24117609 (Version 1)
Quarter: 2024Q3

REPORT INFORMATION
  Report Type: Spontaneous
  Country: US (occurrence: US)
  Receive Date: 20240722
  Receipt Date: 20240722
  Transmission Date: 20241016
  Serious: Yes (Hospitalization, Other)
  Sender: SANOFI AVENTIS
  Company Number: US-SA-2024SA209127

PATIENT
  Age: 61 Year
  Sex: Male

DRUGS (6)
  1. ALEMTUZUMAB [Suspect]
     Active Substance: ALEMTUZUMAB
     Indication: Chronic lymphocytic leukaemia
     Dosage: UNK
  2. METHYLPREDNISOLONE [Suspect]
     Active Substance: METHYLPREDNISOLONE
     Indication: Chronic lymphocytic leukaemia
     Dosage: 1 G, QD
  3. ACALABRUTINIB [Suspect]
     Active Substance: ACALABRUTINIB
     Indication: Chronic lymphocytic leukaemia
     Dosage: UNK
  4. AMLODIPINE [Concomitant]
     Active Substance: AMLODIPINE BESYLATE
     Indication: Hypertension
     Dosage: UNK
  5. METFORMIN [Concomitant]
     Active Substance: METFORMIN HYDROCHLORIDE
     Indication: Type 2 diabetes mellitus
     Dosage: UNK
  6. HYDROCHLOROTHIAZIDE [Concomitant]
     Active Substance: HYDROCHLOROTHIAZIDE
     Indication: Hypertension
     Dosage: UNK

REACTIONS (24)
  - Encephalitis brain stem [Recovering/Resolving]
  - Dysarthria [Recovering/Resolving]
  - Diplopia [Recovering/Resolving]
  - Dysmetria [Recovering/Resolving]
  - Herpes simplex [Recovering/Resolving]
  - Encephalopathy [Recovering/Resolving]
  - Hypogammaglobulinaemia [Recovering/Resolving]
  - Staphylococcal bacteraemia [Recovering/Resolving]
  - Cranial nerve paralysis [Recovering/Resolving]
  - Azotaemia [Recovering/Resolving]
  - Acute respiratory failure [Recovering/Resolving]
  - Aspiration [Recovering/Resolving]
  - Pseudomonas infection [Recovering/Resolving]
  - Klebsiella infection [Recovering/Resolving]
  - Fungaemia [Recovering/Resolving]
  - Pyrexia [Recovering/Resolving]
  - Pneumonia [Recovering/Resolving]
  - Paralysis [Unknown]
  - Locked-in syndrome [Unknown]
  - Fatigue [Unknown]
  - Confusional state [Unknown]
  - Gait disturbance [Unknown]
  - Facial paralysis [Unknown]
  - Ataxia [Recovering/Resolving]
